FAERS Safety Report 24687798 (Version 1)
Quarter: 2024Q4

REPORT INFORMATION
  Report Type: Spontaneous
  Country: US (occurrence: US)
  Receive Date: 20241202
  Receipt Date: 20241202
  Transmission Date: 20250114
  Serious: No
  Sender: SANOFI AVENTIS
  Company Number: US-SA-2024SA350186

PATIENT
  Sex: Male
  Weight: 105.45 kg

DRUGS (15)
  1. DUPIXENT [Suspect]
     Active Substance: DUPILUMAB
     Indication: Dermatitis atopic
     Dosage: 300 MG, QOW
     Route: 058
  2. ROPINIROLE HYDROCHLORIDE [Concomitant]
     Active Substance: ROPINIROLE HYDROCHLORIDE
  3. TRIAMCINOLONE ACETONIDE [Concomitant]
     Active Substance: TRIAMCINOLONE ACETONIDE
  4. HUMALOG KWIKPEN [Concomitant]
     Active Substance: INSULIN LISPRO
  5. PREGABALIN [Concomitant]
     Active Substance: PREGABALIN
  6. ALLOPURINOL [Concomitant]
     Active Substance: ALLOPURINOL
  7. SPIRONOLACTONE [Concomitant]
     Active Substance: SPIRONOLACTONE
  8. ECONAZOLE NITRATE [Concomitant]
     Active Substance: ECONAZOLE NITRATE
  9. LANTUS SOLOSTAR [Concomitant]
     Active Substance: INSULIN GLARGINE
  10. MAGNESIUM [Concomitant]
     Active Substance: MAGNESIUM
  11. OZEMPIC [Concomitant]
     Active Substance: SEMAGLUTIDE
  12. FLUCONAZOLE [Concomitant]
     Active Substance: FLUCONAZOLE
  13. FUROSEMIDE [Concomitant]
     Active Substance: FUROSEMIDE
  14. FLUOCINONIDE [Concomitant]
     Active Substance: FLUOCINONIDE
  15. LACTULOSE [Concomitant]
     Active Substance: LACTULOSE

REACTIONS (1)
  - Injection site discolouration [Recovered/Resolved]
